FAERS Safety Report 6201926-9 (Version None)
Quarter: 2009Q2

REPORT INFORMATION
  Report Type: 
  Country: None (occurrence: None)
  Receive Date: 20090526
  Receipt Date: 20090522
  Transmission Date: 20091009
  Serious: Yes (Death, Hospitalization, Other)
  Sender: FDA-Public Use
  Company Number: PHHY2009BR19838

PATIENT
  Sex: Female

DRUGS (5)
  1. FORASEQ [Suspect]
     Indication: ASTHMA
     Dosage: UNK
  2. ASPIRIN [Concomitant]
     Dosage: 100 MG, QD
     Route: 048
  3. BEROTEC [Concomitant]
  4. ATROVENT [Concomitant]
  5. MUSCLE RELAXANTS [Concomitant]
     Dosage: ONCE/NIGHTLY

REACTIONS (5)
  - ABDOMINAL PAIN UPPER [None]
  - ASTHENIA [None]
  - DEATH [None]
  - DYSPNOEA [None]
  - HYPOPHAGIA [None]
